FAERS Safety Report 23743766 (Version 1)
Quarter: 2024Q2

REPORT INFORMATION
  Report Type: Report from Study
  Country: IT (occurrence: IT)
  Receive Date: 20240415
  Receipt Date: 20240415
  Transmission Date: 20240716
  Serious: Yes (Other)
  Sender: FDA-Public Use
  Company Number: None

PATIENT
  Age: 78 Year
  Sex: Female

DRUGS (3)
  1. PACLITAXEL [Suspect]
     Active Substance: PACLITAXEL
     Indication: Breast cancer
     Dosage: START OF THERAPY 02/06/2024 - WEEKLY THERAPY - 06/02 FIRST WEEK, SECOND WEEK OF THERAPY ON 02/13/...
     Route: 042
     Dates: start: 20240206, end: 20240206
  2. PERTUZUMAB [Suspect]
     Active Substance: PERTUZUMAB
     Indication: Breast cancer
     Dosage: START OF THERAPY 02/06/2024 - 1ST CYCLE - THERAPY EVERY 21 DAYS
     Route: 042
     Dates: start: 20240206, end: 20240206
  3. TRASTUZUMAB [Suspect]
     Active Substance: TRASTUZUMAB
     Indication: Breast cancer
     Dosage: START OF THERAPY 02/06/2024 - 1ST CYCLE - THERAPY EVERY 21 DAYS
     Route: 042
     Dates: start: 20240206, end: 20240206

REACTIONS (4)
  - Leukopenia [Recovering/Resolving]
  - Diarrhoea [Recovered/Resolved]
  - Neutropenia [Recovering/Resolving]
  - Off label use [Recovering/Resolving]

NARRATIVE: CASE EVENT DATE: 20240206
